FAERS Safety Report 20430414 (Version 2)
Quarter: 2022Q2

REPORT INFORMATION
  Report Type: Report from Study
  Country: FR (occurrence: FR)
  Receive Date: 20220204
  Receipt Date: 20220623
  Transmission Date: 20220720
  Serious: Yes (Other)
  Sender: FDA-Public Use
  Company Number: FR-SERVIER-S20007230

PATIENT

DRUGS (7)
  1. PEGASPARGASE [Suspect]
     Active Substance: PEGASPARGASE
     Indication: Acute lymphocytic leukaemia
     Dosage: 750 IU, QD, D12
     Route: 042
     Dates: start: 20200606
  2. VINCRISTINE [Concomitant]
     Active Substance: VINCRISTINE
     Indication: Acute lymphocytic leukaemia
     Dosage: 0.9 MG, D8, D15, D22
     Route: 042
     Dates: start: 20200602
  3. DAUNORUBICIN [Concomitant]
     Active Substance: DAUNORUBICIN
     Indication: Acute lymphocytic leukaemia
     Dosage: 18.5 MG, D8, D15, D22
     Route: 042
     Dates: start: 20200602
  4. PREDNISOLONE [Concomitant]
     Active Substance: PREDNISOLONE
     Indication: Acute lymphocytic leukaemia
     Dosage: 40 MG, D8 TO D28
     Route: 048
     Dates: start: 20200602
  5. METHOTREXATE [Concomitant]
     Active Substance: METHOTREXATE
     Indication: Acute lymphocytic leukaemia
     Dosage: 10 MG, D9, D13, D18, D24
     Route: 037
     Dates: start: 20200603, end: 20200618
  6. CYTARABINE [Concomitant]
     Active Substance: CYTARABINE
     Indication: Acute lymphocytic leukaemia
     Dosage: 25 MG, D9, D13, D18, D24
     Route: 037
     Dates: start: 20200603, end: 20200618
  7. METHYLPREDNISOLONE [Concomitant]
     Active Substance: METHYLPREDNISOLONE
     Indication: Acute lymphocytic leukaemia
     Dosage: 12.4 MG, D9, D13, D18, D24
     Route: 037
     Dates: start: 20200603, end: 20200618

REACTIONS (2)
  - Meningitis streptococcal [Recovered/Resolved]
  - Hyperbilirubinaemia [Recovered/Resolved]

NARRATIVE: CASE EVENT DATE: 20200618
